FAERS Safety Report 11886649 (Version 2)
Quarter: 2016Q3

REPORT INFORMATION
  Report Type: Spontaneous
  Country: US (occurrence: US)
  Receive Date: 20160104
  Receipt Date: 20160926
  Transmission Date: 20161109
  Serious: No
  Sender: FDA-Public Use
  Company Number: US-PFIZER INC-2015441757

PATIENT
  Age: 58 Year
  Sex: Female
  Weight: 54.42 kg

DRUGS (10)
  1. CHANTIX [Suspect]
     Active Substance: VARENICLINE TARTRATE
     Dosage: 1 MG, 2X/DAY
     Dates: start: 201609
  2. VITAMIN B12 [Concomitant]
     Active Substance: CYANOCOBALAMIN
     Indication: MULTIPLE SCLEROSIS
     Dosage: 1000 MG, 1X/DAY
     Route: 048
  3. B-1 [Concomitant]
     Indication: MULTIPLE SCLEROSIS
     Dosage: 100 MG, 1X/DAY
     Route: 048
  4. FISH OIL [Concomitant]
     Active Substance: FISH OIL
     Indication: MULTIPLE SCLEROSIS
     Dosage: 1360 MG, 1X/DAY
     Route: 048
  5. E WITH TOCOPHEROLS [Concomitant]
     Indication: MULTIPLE SCLEROSIS
     Dosage: 1000 IU, 1X/DAY
     Route: 048
  6. VITAMIN D3 [Concomitant]
     Active Substance: CHOLECALCIFEROL
     Indication: MULTIPLE SCLEROSIS
     Dosage: 5000 IU, 1X/DAY
     Route: 048
  7. TECFIDERA [Concomitant]
     Active Substance: DIMETHYL FUMARATE
     Indication: MULTIPLE SCLEROSIS
     Dosage: 240 MG, 2X/DAY
     Route: 048
     Dates: start: 201106
  8. CHANTIX [Suspect]
     Active Substance: VARENICLINE TARTRATE
     Indication: SMOKING CESSATION THERAPY
     Dosage: UNK UNK, 2X/DAY
     Dates: start: 201403, end: 201404
  9. RESVERATROL [Concomitant]
     Active Substance: RESVERATROL
     Indication: MULTIPLE SCLEROSIS
     Dosage: 250 MG, 1X/DAY
     Route: 048
  10. TURMERIC [Concomitant]
     Active Substance: TURMERIC
     Indication: MULTIPLE SCLEROSIS
     Dosage: 500 MG, 1X/DAY
     Route: 048

REACTIONS (4)
  - Decreased appetite [Unknown]
  - Nausea [Unknown]
  - Malaise [Unknown]
  - Abdominal discomfort [Unknown]

NARRATIVE: CASE EVENT DATE: 20151204
